FAERS Safety Report 11720904 (Version 1)
Quarter: 2015Q4

REPORT INFORMATION
  Report Type: Spontaneous
  Country: US (occurrence: US)
  Receive Date: 20151110
  Receipt Date: 20151110
  Transmission Date: 20160304
  Serious: No
  Sender: FDA-Public Use
  Company Number: US-SA-2015SA134480

PATIENT
  Sex: Female

DRUGS (4)
  1. PRALUENT [Suspect]
     Active Substance: ALIROCUMAB
     Dosage: IN LEFT LEG
     Route: 065
  2. ALIROCUMAB PREFILLED PEN [Concomitant]
  3. ALIROCUMAB PREFILLED PEN [Concomitant]
  4. PRALUENT [Suspect]
     Active Substance: ALIROCUMAB
     Dosage: IN RIGHT LEG
     Route: 065

REACTIONS (2)
  - Limb discomfort [Recovered/Resolved]
  - Feeling hot [Recovered/Resolved]
